FAERS Safety Report 6823245-X (Version None)
Quarter: 2010Q3

REPORT INFORMATION
  Report Type: 
  Country: None (occurrence: None)
  Receive Date: 20100708
  Receipt Date: 20100701
  Transmission Date: 20110219
  Serious: Yes (Other)
  Sender: FDA-Public Use
  Company Number: US-ALLERGAN-1008633US

PATIENT
  Sex: Female

DRUGS (3)
  1. BOTOX COSMETIC [Suspect]
     Indication: SKIN WRINKLING
     Dosage: UNK, SINGLE
     Route: 030
     Dates: start: 20100204, end: 20100204
  2. RESTYLANE [Suspect]
     Indication: SKIN WRINKLING
  3. BOTULINUM TOXIN [Suspect]
     Indication: SKIN WRINKLING

REACTIONS (6)
  - CHOKING SENSATION [None]
  - DYSPHONIA [None]
  - DYSPNOEA [None]
  - HYPERSENSITIVITY [None]
  - NECK PAIN [None]
  - OROPHARYNGEAL SPASM [None]
